FAERS Safety Report 9436204 (Version 1)
Quarter: 2013Q3

REPORT INFORMATION
  Report Type: Spontaneous
  Country: US (occurrence: US)
  Receive Date: 20130801
  Receipt Date: 20130801
  Transmission Date: 20140515
  Serious: Yes (Disabling, Other)
  Sender: FDA-Public Use
  Company Number: US-TEVA-422651USA

PATIENT
  Sex: Female

DRUGS (3)
  1. PROPOXYPHENE NAPSYLATE AND ACETAMINOPHEN [Suspect]
     Indication: PAIN
  2. DARVOCET [Suspect]
     Indication: PAIN
  3. DARVON [Suspect]
     Indication: PAIN

REACTIONS (5)
  - Arrhythmia [Unknown]
  - Cardiac disorder [Unknown]
  - Cardiovascular disorder [Unknown]
  - Arrhythmia supraventricular [Unknown]
  - Ventricular arrhythmia [Unknown]
